FAERS Safety Report 7940402-X (Version None)
Quarter: 2011Q4

REPORT INFORMATION
  Report Type: 
  Country: None (occurrence: None)
  Receive Date: 20111127
  Receipt Date: 20111117
  Transmission Date: 20120403
  Serious: Yes (Death)
  Sender: FDA-Public Use
  Company Number: US-ELI_LILLY_AND_COMPANY-US201111005492

PATIENT
  Sex: Female

DRUGS (14)
  1. FORTEO [Suspect]
     Indication: BONE DISORDER
     Dosage: 20 UG, QD
     Dates: start: 20100301, end: 20111013
  2. MIRAPEX [Concomitant]
  3. GABAPENTIN [Concomitant]
  4. VITAMIN B-12 [Concomitant]
  5. MULTIVITAMIN [Concomitant]
  6. VITAMIN D [Concomitant]
  7. ASPIRIN [Concomitant]
  8. FUROSEMIDE [Concomitant]
  9. PLAVIX [Concomitant]
  10. SYNTHROID [Concomitant]
  11. HYDROCODONE BITARTRATE [Concomitant]
  12. FLUOXETINE [Concomitant]
  13. RANEXA [Concomitant]
  14. CALTRATE                           /00944201/ [Concomitant]

REACTIONS (2)
  - DYSPNOEA [None]
  - CARDIAC DISORDER [None]
